FAERS Safety Report 11319510 (Version 1)
Quarter: 2015Q3

REPORT INFORMATION
  Report Type: Report from Study
  Country: KR (occurrence: KR)
  Receive Date: 20150729
  Receipt Date: 20150729
  Transmission Date: 20151125
  Serious: No
  Sender: FDA-Public Use
  Company Number: PHHY2015KR040439

PATIENT
  Age: 53 Year
  Sex: Female

DRUGS (6)
  1. AMN107 [Suspect]
     Active Substance: NILOTINIB
     Indication: CHRONIC MYELOID LEUKAEMIA
     Dosage: 600 MG, QD
     Route: 048
     Dates: start: 20130109
  2. SMECTA [Concomitant]
     Active Substance: MONTMORILLONITE
     Indication: PROPHYLAXIS
     Dosage: 40 ML,
     Route: 048
     Dates: start: 20130109, end: 20130116
  3. SYNTHROID [Concomitant]
     Active Substance: LEVOTHYROXINE SODIUM
     Indication: THYROIDECTOMY
     Dosage: 0.15 MG,
     Route: 048
     Dates: start: 20130106
  4. LEGALON [Concomitant]
     Active Substance: MILK THISTLE
     Indication: ASPARTATE AMINOTRANSFERASE INCREASED
  5. DIABEX [Concomitant]
     Active Substance: METFORMIN HYDROCHLORIDE
     Indication: DIABETES MELLITUS
     Dosage: 1 G,
     Route: 048
     Dates: start: 20130106
  6. LEGALON [Concomitant]
     Active Substance: MILK THISTLE
     Indication: ALANINE AMINOTRANSFERASE INCREASED

REACTIONS (1)
  - Hypocalcaemia [Recovered/Resolved]

NARRATIVE: CASE EVENT DATE: 20130401
